FAERS Safety Report 16425920 (Version 1)
Quarter: 2019Q2

REPORT INFORMATION
  Report Type: Spontaneous
  Country: CH (occurrence: CH)
  Receive Date: 20190613
  Receipt Date: 20190613
  Transmission Date: 20190711
  Serious: Yes (Other)
  Sender: FDA-Public Use
  Company Number: PHHY2019CH108793

PATIENT
  Age: 1 Year
  Sex: Male

DRUGS (3)
  1. KYMRIAH [Suspect]
     Active Substance: TISAGENLECLEUCEL
     Indication: ACUTE LYMPHOCYTIC LEUKAEMIA
     Dosage: 0.2-5.0 E-6, ONCE/SINGLE
     Route: 042
     Dates: start: 20181212
  2. KYMRIAH [Suspect]
     Active Substance: TISAGENLECLEUCEL
     Dosage: UNK UKN, UNK
     Route: 042
     Dates: start: 20190605
  3. 6-MERCAPTOPURINE MONOHYDRATE [Concomitant]
     Active Substance: MERCAPTOPURINE
     Indication: PRODUCT USED FOR UNKNOWN INDICATION
     Route: 065

REACTIONS (3)
  - Off label use [Unknown]
  - Acute lymphocytic leukaemia recurrent [Not Recovered/Not Resolved]
  - Malignant neoplasm progression [Not Recovered/Not Resolved]

NARRATIVE: CASE EVENT DATE: 20190506
